FAERS Safety Report 20493643 (Version 1)
Quarter: 2022Q1

REPORT INFORMATION
  Report Type: Spontaneous
  Country: US (occurrence: US)
  Receive Date: 20220221
  Receipt Date: 20220221
  Transmission Date: 20220424
  Serious: Yes (Other)
  Sender: FDA-Public Use
  Company Number: US-AMGEN-USASP2022026670

PATIENT
  Age: 17 Year
  Sex: Male

DRUGS (1)
  1. BLINATUMOMAB [Suspect]
     Active Substance: BLINATUMOMAB
     Indication: Acute lymphocytic leukaemia
     Dosage: UNK
     Route: 065

REACTIONS (5)
  - B-cell aplasia [Unknown]
  - Minimal residual disease [Unknown]
  - COVID-19 [Recovered/Resolved]
  - Lymphopenia [Unknown]
  - Drug ineffective [Unknown]
